FAERS Safety Report 9321264 (Version 2)
Quarter: 2013Q2

REPORT INFORMATION
  Report Type: Not Available
  Country: US (occurrence: None)
  Receive Date: 20130528
  Receipt Date: 20130607
  Transmission Date: 20140414
  Serious: Yes (Death, Hospitalization)
  Sender: FDA-Public Use
  Company Number: 2013PL000076

PATIENT
  Age: 19 Year
  Sex: Female
  Weight: 68.95 kg

DRUGS (6)
  1. MERCAPTOPURINE [Suspect]
     Indication: CROHN^S DISEASE
     Dates: start: 200805
  2. CIMZIA [Suspect]
     Indication: CROHN^S DISEASE
     Route: 058
     Dates: start: 201109
  3. ZOFRAN [Concomitant]
  4. ULTRAM [Concomitant]
  5. ERGOCALCIFEROL [Concomitant]
  6. MULTI-VITAMIN INFUSION [Concomitant]

REACTIONS (14)
  - Meningitis [None]
  - Bronchopneumonia [None]
  - Sepsis [None]
  - Unresponsive to stimuli [None]
  - Beta haemolytic streptococcal infection [None]
  - Haemophilus test positive [None]
  - Rectal discharge [None]
  - Rectal abscess [None]
  - Pleural effusion [None]
  - Pulmonary haemorrhage [None]
  - Kidney fibrosis [None]
  - Brain injury [None]
  - Cerebral ischaemia [None]
  - Brain injury [None]
